FAERS Safety Report 17484542 (Version 1)
Quarter: 2020Q1

REPORT INFORMATION
  Report Type: Report from Study
  Country: IT (occurrence: IT)
  Receive Date: 20200302
  Receipt Date: 20200302
  Transmission Date: 20200409
  Serious: Yes (Other)
  Sender: FDA-Public Use
  Company Number: IT-MYLANLABS-2020M1021740

PATIENT
  Age: 82 Year
  Sex: Female

DRUGS (1)
  1. FELODIPINA MYLAN GENERICS 5 MG COMPRESSE A RILASCIO PROLUNGATO [Suspect]
     Active Substance: FELODIPINE
     Indication: HYPERTENSION
     Dosage: 1 DOSAGE FORM, QD
     Route: 048
     Dates: start: 20191019

REACTIONS (5)
  - Paraesthesia [Recovering/Resolving]
  - Tachycardia [Recovering/Resolving]
  - Hypertension [Recovering/Resolving]
  - Drug ineffective [Recovering/Resolving]
  - Dyspnoea [Recovering/Resolving]

NARRATIVE: CASE EVENT DATE: 20191229
